FAERS Safety Report 4596742-8 (Version None)
Quarter: 2005Q1

REPORT INFORMATION
  Report Type: 
  Country: None (occurrence: None)
  Receive Date: 20050302
  Receipt Date: 20050221
  Transmission Date: 20050727
  Serious: Yes (Other)
  Sender: FDA-Public Use
  Company Number: SE-GLAXOSMITHKLINE-B0373228A

PATIENT
  Sex: Female

DRUGS (4)
  1. PAROXETINE HCL [Suspect]
     Indication: PANIC DISORDER
     Dosage: 30MG PER DAY
     Route: 065
  2. AMILORIDE HCL AND HYDROCHLOROTHIAZIDE [Concomitant]
     Indication: HYPERTENSION
     Route: 065
  3. ATENOLOL [Concomitant]
     Indication: HYPERTENSION
     Route: 065
  4. VITAMIN B-12 [Concomitant]
     Indication: DRUG USE FOR UNKNOWN INDICATION
     Route: 065

REACTIONS (2)
  - ALANINE AMINOTRANSFERASE INCREASED [None]
  - FAECES PALE [None]
